FAERS Safety Report 5519156-2 (Version None)
Quarter: 2007Q4

REPORT INFORMATION
  Report Type: 
  Country: None (occurrence: None)
  Receive Date: 20071116
  Receipt Date: 20071105
  Transmission Date: 20080405
  Serious: Yes (Other)
  Sender: FDA-Public Use
  Company Number: GB-NOVOPROD-264677

PATIENT
  Age: 49 Year
  Sex: Male

DRUGS (2)
  1. LEVEMIR [Suspect]
     Indication: TYPE 1 DIABETES MELLITUS
     Dosage: 18 IU, QD
     Route: 058
     Dates: start: 20051001, end: 20051101
  2. INSULIN LISPRO [Concomitant]

REACTIONS (1)
  - STEVENS-JOHNSON SYNDROME [None]
